FAERS Safety Report 8426884-8 (Version None)
Quarter: 2012Q2

REPORT INFORMATION
  Report Type: 
  Country: None (occurrence: None)
  Receive Date: 20120531
  Receipt Date: 20120524
  Transmission Date: 20120825
  Serious: Yes (Hospitalization, Disabling)
  Sender: FDA-Public Use
  Company Number: 2012SP000252

PATIENT
  Age: 25 Year
  Sex: Female
  Weight: 113.3993 kg

DRUGS (6)
  1. NUVARING [Suspect]
     Indication: OVARIAN CYST
     Dates: start: 20040101, end: 20060101
  2. NUVARING [Suspect]
     Indication: MENSTRUAL DISORDER
     Dates: start: 20040101, end: 20060101
  3. NUVARING [Suspect]
     Indication: CONTRACEPTION
     Dates: start: 20040101, end: 20060101
  4. NUVARING [Suspect]
     Indication: OVARIAN CYST
     Dates: start: 20070101, end: 20090101
  5. NUVARING [Suspect]
     Indication: MENSTRUAL DISORDER
     Dates: start: 20070101, end: 20090101
  6. NUVARING [Suspect]
     Indication: CONTRACEPTION
     Dates: start: 20070101, end: 20090101

REACTIONS (33)
  - CONSTIPATION [None]
  - CLOSTRIDIUM DIFFICILE COLITIS [None]
  - ANTINUCLEAR ANTIBODY POSITIVE [None]
  - FALL [None]
  - OVARIAN CYST [None]
  - FOCAL NODULAR HYPERPLASIA [None]
  - MIGRAINE [None]
  - PRESYNCOPE [None]
  - GASTROINTESTINAL DISORDER [None]
  - PULMONARY INFARCTION [None]
  - KIDNEY INFECTION [None]
  - HAEMORRHOIDS [None]
  - GASTROINTESTINAL HAEMORRHAGE [None]
  - METASTASES TO LIVER [None]
  - UPPER RESPIRATORY TRACT INFECTION [None]
  - BRONCHITIS [None]
  - OEDEMA PERIPHERAL [None]
  - COLONIC POLYP [None]
  - OESOPHAGEAL ULCER [None]
  - PYELONEPHRITIS [None]
  - SCIATICA [None]
  - AMENORRHOEA [None]
  - ADRENAL DISORDER [None]
  - ASTHMA [None]
  - CHOLECYSTITIS CHRONIC [None]
  - PULMONARY EMBOLISM [None]
  - INFECTIOUS MONONUCLEOSIS [None]
  - SMEAR CERVIX ABNORMAL [None]
  - COLITIS [None]
  - SEASONAL ALLERGY [None]
  - ANAL FISSURE [None]
  - IMPAIRED WORK ABILITY [None]
  - HISTOPLASMOSIS [None]
